FAERS Safety Report 4415990-0 (Version None)
Quarter: 2004Q3

REPORT INFORMATION
  Report Type: 
  Country: None (occurrence: None)
  Receive Date: 20040804
  Receipt Date: 20040804
  Transmission Date: 20050211
  Serious: Yes (Hospitalization)
  Sender: FDA-Public Use
  Company Number: None

PATIENT
  Age: 43 Year
  Sex: Male
  Weight: 87.5442 kg

DRUGS (18)
  1. DOXORUBICIN HCL [Suspect]
     Indication: PROSTATE CANCER
     Dosage: 50 MG/M2/15 MG/M2
     Dates: start: 20040510
  2. DOXORUBICIN HCL [Suspect]
     Indication: PROSTATE CANCER
     Dosage: 50 MG/M2/15 MG/M2
     Dates: start: 20040531
  3. DOXORUBICIN HCL [Suspect]
     Indication: PROSTATE CANCER
     Dosage: 50 MG/M2/15 MG/M2
     Dates: start: 20040601
  4. DOXORUBICIN HCL [Suspect]
     Indication: PROSTATE CANCER
     Dosage: 50 MG/M2/15 MG/M2
     Dates: start: 20040614
  5. DOXORUBICIN HCL [Suspect]
     Indication: PROSTATE CANCER
     Dosage: 50 MG/M2/15 MG/M2
     Dates: start: 20040712
  6. TAXOTERE [Suspect]
     Indication: PROSTATE CANCER
     Dosage: 70 MG/M2/ 30 MG/M2
     Dates: start: 20040510
  7. TAXOTERE [Suspect]
     Indication: PROSTATE CANCER
     Dosage: 70 MG/M2/ 30 MG/M2
     Dates: start: 20040531
  8. TAXOTERE [Suspect]
     Indication: PROSTATE CANCER
     Dosage: 70 MG/M2/ 30 MG/M2
     Dates: start: 20040601
  9. TAXOTERE [Suspect]
     Indication: PROSTATE CANCER
     Dosage: 70 MG/M2/ 30 MG/M2
     Dates: start: 20040614
  10. TAXOTERE [Suspect]
     Indication: PROSTATE CANCER
     Dosage: 70 MG/M2/ 30 MG/M2
     Dates: start: 20040712
  11. HYTRIN [Concomitant]
  12. M.V.I. [Concomitant]
  13. METHADONE HCL [Concomitant]
  14. COMPAZINE [Concomitant]
  15. MYLANTA [Concomitant]
  16. AMBIEN [Concomitant]
  17. EFFEXOR [Concomitant]
  18. ZOLADEX [Concomitant]

REACTIONS (3)
  - CHEST DISCOMFORT [None]
  - DYSPNOEA [None]
  - REFUSAL OF TREATMENT BY PATIENT [None]
